FAERS Safety Report 4384653-2 (Version None)
Quarter: 2004Q2

REPORT INFORMATION
  Report Type: 
  Country: None (occurrence: None)
  Receive Date: 20040621
  Receipt Date: 20040608
  Transmission Date: 20050107
  Serious: Yes (Other)
  Sender: FDA-Public Use
  Company Number: 207034

PATIENT
  Age: 56 Year
  Sex: Male

DRUGS (4)
  1. MABTHERA(RITUXIMAB) CONC FOR SOLUTION FOR INFUSION [Suspect]
     Indication: LYMPHOMA
     Dosage: INTRAVENOUS
     Route: 042
     Dates: start: 20031202, end: 20040114
  2. CISPLATIN [Suspect]
     Indication: LYMPHOMA
     Dosage: INTRAVENOUS
     Route: 042
  3. CYTARABINE [Suspect]
     Indication: LYMPHOMA
     Dosage: INTRAVENOUS
     Route: 042
  4. DEXAMETHASONE [Suspect]
     Indication: LYMPHOMA

REACTIONS (3)
  - APHASIA [None]
  - CEREBROVASCULAR ACCIDENT [None]
  - TREMOR [None]
